FAERS Safety Report 5001755-8 (Version None)
Quarter: 2006Q2

REPORT INFORMATION
  Report Type: 
  Country: None (occurrence: None)
  Receive Date: 20060515
  Receipt Date: 20060512
  Transmission Date: 20061013
  Serious: Yes (Hospitalization)
  Sender: FDA-Public Use
  Company Number: DE-JNJFOC-20060305539

PATIENT
  Age: 19 Year
  Sex: Female

DRUGS (10)
  1. RISPERDAL [Suspect]
     Route: 048
  2. RISPERDAL [Suspect]
     Route: 048
  3. HALDOL [Suspect]
     Route: 048
  4. MELNEURIN [Suspect]
     Indication: DRUG USE FOR UNKNOWN INDICATION
     Route: 048
  5. SAROTEN [Suspect]
     Route: 048
  6. SAROTEN [Suspect]
     Indication: DRUG USE FOR UNKNOWN INDICATION
     Route: 048
  7. SOLIAN [Suspect]
     Route: 048
  8. SOLIAN [Suspect]
     Route: 048
  9. SOLIAN [Suspect]
     Route: 048
  10. METHIZOL [Concomitant]
     Route: 048

REACTIONS (6)
  - AGITATION [None]
  - ANXIETY [None]
  - BREAST PAIN [None]
  - GALACTORRHOEA [None]
  - HYPERPROLACTINAEMIA [None]
  - RESTLESSNESS [None]
